FAERS Safety Report 15525120 (Version 1)
Quarter: 2018Q4

REPORT INFORMATION
  Report Type: Spontaneous
  Country: JP (occurrence: JP)
  Receive Date: 20181018
  Receipt Date: 20181018
  Transmission Date: 20190205
  Serious: Yes (Other)
  Sender: FDA-Public Use
  Company Number: JP-SUN PHARMACEUTICAL INDUSTRIES LTD-2018RR-188270

PATIENT
  Sex: Male

DRUGS (7)
  1. LEVOFLOXACIN. [Suspect]
     Active Substance: LEVOFLOXACIN
     Indication: GRANULOMA
     Dosage: 500 MG, DAILY
     Route: 065
  2. CLOFAZIMINE [Suspect]
     Active Substance: CLOFAZIMINE
     Indication: GRANULOMA
     Dosage: 50 MG, DAILY
     Route: 065
  3. PREDNISOLONE. [Suspect]
     Active Substance: PREDNISOLONE
     Indication: OEDEMA
     Dosage: 30 MG, DAILY
     Route: 065
     Dates: end: 1994
  4. CLARITHROMYCIN. [Suspect]
     Active Substance: CLARITHROMYCIN
     Indication: GRANULOMA
     Dosage: 400 MG, DAILY
     Route: 065
     Dates: end: 1989
  5. PREDNISOLONE. [Suspect]
     Active Substance: PREDNISOLONE
     Indication: FLUSHING
     Dosage: 20 MG, UNK
     Route: 065
  6. MINOMYCIN [Suspect]
     Active Substance: MINOCYCLINE HYDROCHLORIDE
     Indication: GRANULOMA
     Dosage: 100 MG, DAILY
     Route: 065
     Dates: end: 1997
  7. PREDNISOLONE. [Suspect]
     Active Substance: PREDNISOLONE
     Dosage: 10 MG, UNK
     Route: 065

REACTIONS (4)
  - Neurological symptom [Recovered/Resolved]
  - Disease recurrence [Unknown]
  - Pigmentation disorder [Recovering/Resolving]
  - Inflammation [Recovering/Resolving]
